FAERS Safety Report 23513763 (Version 2)
Quarter: 2024Q1

REPORT INFORMATION
  Report Type: Spontaneous
  Country: US (occurrence: US)
  Receive Date: 20240212
  Receipt Date: 20240214
  Transmission Date: 20240409
  Serious: Yes (Other)
  Sender: FDA-Public Use
  Company Number: US-BAYER-2024A018331

PATIENT
  Age: 73 Year
  Sex: Female

DRUGS (1)
  1. GENUINE BAYER ASPIRIN [Suspect]
     Active Substance: ASPIRIN
     Indication: Anticoagulant therapy
     Dosage: 1 DF
     Route: 048
     Dates: start: 20240130, end: 20240130

REACTIONS (3)
  - Arrhythmia [Unknown]
  - Dizziness [Unknown]
  - Somnolence [Unknown]
